FAERS Safety Report 8914482 (Version 4)
Quarter: 2013Q4

REPORT INFORMATION
  Report Type: Spontaneous
  Country: US (occurrence: US)
  Receive Date: 20121116
  Receipt Date: 20131204
  Transmission Date: 20140711
  Serious: Yes (Death, Hospitalization, Disabling, Other)
  Sender: FDA-Public Use
  Company Number: US-009507513-1211USA006496

PATIENT
  Sex: Male
  Weight: 141.4 kg

DRUGS (2)
  1. FOSAMAX [Suspect]
     Indication: OSTEOPENIA
     Dosage: 70 MG, QW
     Route: 048
  2. FOSAMAX PLUS D [Suspect]
     Indication: OSTEOPENIA
     Dosage: 70 MG, UNK
     Route: 048

REACTIONS (43)
  - Femur fracture [Fatal]
  - Pulmonary embolism [Fatal]
  - Deep vein thrombosis [Fatal]
  - Sarcoidosis [Fatal]
  - Cardiac arrest [Fatal]
  - Intramedullary rod insertion [Unknown]
  - Spinal fusion surgery [Unknown]
  - Medical device removal [Unknown]
  - Intramedullary rod insertion [Unknown]
  - Respiratory failure [Unknown]
  - Carpal tunnel syndrome [Not Recovered/Not Resolved]
  - Spinal operation [Unknown]
  - Rotator cuff repair [Unknown]
  - Cerebral sarcoidosis [Not Recovered/Not Resolved]
  - Ocular sarcoidosis [Not Recovered/Not Resolved]
  - Adverse event [Unknown]
  - Type 1 diabetes mellitus [Unknown]
  - Intervertebral disc protrusion [Unknown]
  - Myelomalacia [Unknown]
  - Hypotension [Unknown]
  - Hypoxia [Unknown]
  - Postoperative fever [Unknown]
  - Sleep apnoea syndrome [Unknown]
  - Benign prostatic hyperplasia [Unknown]
  - Hypertension [Unknown]
  - Dyslipidaemia [Unknown]
  - Hepatic steatosis [Unknown]
  - Lymphoedema [Unknown]
  - Joint effusion [Unknown]
  - Haematoma [Unknown]
  - Anaemia [Unknown]
  - Pulseless electrical activity [Unknown]
  - Cardiac failure congestive [Unknown]
  - Nephrotic syndrome [Unknown]
  - Breast mass [Unknown]
  - Egobronchophony [Unknown]
  - Adrenal insufficiency [Unknown]
  - Steroid withdrawal syndrome [Unknown]
  - Gout [Unknown]
  - Cough [Unknown]
  - Myalgia [Unknown]
  - Arthralgia [Unknown]
  - Gastrooesophageal reflux disease [Unknown]
